FAERS Safety Report 5655184-4 (Version None)
Quarter: 2008Q1

REPORT INFORMATION
  Report Type: 
  Country: None (occurrence: None)
  Receive Date: 20080219
  Receipt Date: 20071113
  Transmission Date: 20080703
  Serious: No
  Sender: FDA-Public Use
  Company Number: WAES 0711USA02956

PATIENT
  Age: 60 Year
  Sex: Female

DRUGS (11)
  1. JANUVIA [Suspect]
     Indication: DIABETES MELLITUS
     Dosage: 50 MG/DAILY/PO
     Route: 048
     Dates: start: 20070515, end: 20070915
  2. DIOVAN [Concomitant]
  3. LONOX [Concomitant]
  4. PLAQUENIL [Concomitant]
  5. GLUCOSAMINE [Concomitant]
  6. TRIAMTERENE AND HYDROCHLOROTHIAZIDE [Concomitant]
  7. [THERAPY UNSPECIFIED] [Concomitant]
  8. OMEGA-3 MARINE TRIGLYCERIDES [Concomitant]
  9. THYROID TAB [Concomitant]
  10. TRAZADONE HYDROCHLORIDE [Concomitant]
  11. MULTI-VITAMINS [Concomitant]

REACTIONS (1)
  - BLOOD CREATININE INCREASED [None]
